FAERS Safety Report 25270261 (Version 1)
Quarter: 2025Q2

REPORT INFORMATION
  Report Type: Spontaneous
  Country: FR (occurrence: FR)
  Receive Date: 20250505
  Receipt Date: 20250505
  Transmission Date: 20250717
  Serious: Yes (Other)
  Sender: GUERBET
  Company Number: None

PATIENT
  Age: 51 Year
  Sex: Male
  Weight: 75 kg

DRUGS (1)
  1. OPTIRAY 350 [Suspect]
     Active Substance: IOVERSOL
     Indication: Computerised tomogram heart
     Dosage: SINGLE DOSE
     Route: 042
     Dates: start: 20250213, end: 20250213

REACTIONS (1)
  - Noninfective sialoadenitis [Recovered/Resolved]

NARRATIVE: CASE EVENT DATE: 20250214
